FAERS Safety Report 9033004 (Version 1)
Quarter: 2013Q1

REPORT INFORMATION
  Report Type: Spontaneous
  Country: IT (occurrence: None)
  Receive Date: 20130110
  Receipt Date: 20130110
  Transmission Date: 20140127
  Serious: Yes (Other)
  Sender: FDA-Public Use
  Company Number: 1549126

PATIENT
  Age: 62 Year
  Sex: Male

DRUGS (2)
  1. OXALIPLATIN [Suspect]
     Indication: COLON CANCER
     Dosage: 156 MG, CYCLICAL, INTRAVENOUS
     Route: 042
     Dates: start: 20120529, end: 20120828
  2. XELODA [Suspect]
     Indication: COLON CANCER
     Route: 048
     Dates: start: 20120529, end: 20120828

REACTIONS (2)
  - Asthenia [None]
  - Decreased appetite [None]
